FAERS Safety Report 12849997 (Version 1)
Quarter: 2016Q4

REPORT INFORMATION
  Report Type: Spontaneous
  Country: US (occurrence: US)
  Receive Date: 20161014
  Receipt Date: 20161014
  Transmission Date: 20170207
  Serious: No
  Sender: FDA-Public Use
  Company Number: US-ROCHE-1756766

PATIENT
  Sex: Male

DRUGS (13)
  1. ESBRIET [Suspect]
     Active Substance: PIRFENIDONE
     Indication: IDIOPATHIC PULMONARY FIBROSIS
     Route: 048
     Dates: start: 20160427
  2. FLUTICASONE [Concomitant]
     Active Substance: FLUTICASONE\FLUTICASONE PROPIONATE
  3. IPRATROPIUM [Concomitant]
     Active Substance: IPRATROPIUM
  4. PRAVASTATIN. [Concomitant]
     Active Substance: PRAVASTATIN
  5. HUMALOG [Concomitant]
     Active Substance: INSULIN LISPRO
  6. RANITIDINE. [Concomitant]
     Active Substance: RANITIDINE
  7. PREDNISOLONE. [Concomitant]
     Active Substance: PREDNISOLONE
  8. PLAVIX [Concomitant]
     Active Substance: CLOPIDOGREL BISULFATE
  9. LANTUS [Concomitant]
     Active Substance: INSULIN GLARGINE
  10. METFORMIN [Concomitant]
     Active Substance: METFORMIN HYDROCHLORIDE
  11. ALLOPURINOL. [Concomitant]
     Active Substance: ALLOPURINOL
  12. RAMIPRIL. [Concomitant]
     Active Substance: RAMIPRIL
  13. FUROSEMIDE. [Concomitant]
     Active Substance: FUROSEMIDE

REACTIONS (2)
  - Constipation [Unknown]
  - Nausea [Recovered/Resolved]
